FAERS Safety Report 12856922 (Version 1)
Quarter: 2016Q4

REPORT INFORMATION
  Report Type: Spontaneous
  Country: US (occurrence: US)
  Receive Date: 20161018
  Receipt Date: 20161018
  Transmission Date: 20170207
  Serious: Yes (Other)
  Sender: FDA-Public Use
  Company Number: US-PFIZER INC-2016482883

PATIENT
  Age: 48 Year
  Sex: Male

DRUGS (4)
  1. TRIVEDON [Concomitant]
     Dosage: UNK
  2. SERTRALINE [Concomitant]
     Active Substance: SERTRALINE HYDROCHLORIDE
  3. VIAGRA [Suspect]
     Active Substance: SILDENAFIL CITRATE
     Dosage: TOOK TWO 100 MG TABLETS WITHIN 3 HOURS
     Route: 048
     Dates: start: 20161013
  4. VIAGRA [Suspect]
     Active Substance: SILDENAFIL CITRATE
     Dosage: UNK
     Route: 048

REACTIONS (9)
  - Dyspnoea [Unknown]
  - Dizziness [Not Recovered/Not Resolved]
  - Hypersomnia [Unknown]
  - Intentional product misuse [Unknown]
  - Psychomotor hyperactivity [Recovered/Resolved]
  - Libido increased [Recovered/Resolved]
  - Loss of consciousness [Unknown]
  - Hypotension [Unknown]
  - Fatigue [Unknown]

NARRATIVE: CASE EVENT DATE: 20161013
